FAERS Safety Report 13471300 (Version 1)
Quarter: 2017Q2

REPORT INFORMATION
  Report Type: Spontaneous
  Country: FR (occurrence: FR)
  Receive Date: 20170424
  Receipt Date: 20170424
  Transmission Date: 20170830
  Serious: Yes (Life-Threatening, Hospitalization)
  Sender: FDA-Public Use
  Company Number: FR-ACCORD-050560

PATIENT
  Age: 40 Year
  Sex: Male

DRUGS (3)
  1. CISPLATIN ACCORD [Suspect]
     Active Substance: CISPLATIN
     Indication: TESTICULAR NEOPLASM
     Dosage: DOSE: 100 MG/100ML
     Route: 042
     Dates: start: 20170308, end: 20170308
  2. ETOPOSIDE MYLAN [Suspect]
     Active Substance: ETOPOSIDE
     Indication: TESTICULAR NEOPLASM
     Dosage: DOSE: 100 MG/ ML
     Route: 042
     Dates: start: 20170308, end: 20170308
  3. BLEOMYCIN [Suspect]
     Active Substance: BLEOMYCIN SULFATE
     Indication: TESTICULAR NEOPLASM
     Dosage: DOSE: 10 MG/ 5 ML
     Route: 042
     Dates: start: 20170308, end: 20170308

REACTIONS (4)
  - Intestinal obstruction [Unknown]
  - Enteritis [Not Recovered/Not Resolved]
  - Febrile bone marrow aplasia [Unknown]
  - Sepsis [Not Recovered/Not Resolved]

NARRATIVE: CASE EVENT DATE: 20170315
